FAERS Safety Report 13659217 (Version 1)
Quarter: 2017Q2

REPORT INFORMATION
  Report Type: Report from Study
  Country: CA (occurrence: CA)
  Receive Date: 20170616
  Receipt Date: 20170616
  Transmission Date: 20170830
  Serious: Yes (Hospitalization, Other)
  Sender: FDA-Public Use
  Company Number: CA-MYLANLABS-2017M1035782

PATIENT

DRUGS (10)
  1. CLOZAPINE. [Suspect]
     Active Substance: CLOZAPINE
     Indication: PRODUCT USED FOR UNKNOWN INDICATION
     Dosage: 100 MG, UNK
     Route: 048
     Dates: start: 20130228, end: 20170421
  2. TYLENOL [Concomitant]
     Active Substance: ACETAMINOPHEN
     Indication: PRODUCT USED FOR UNKNOWN INDICATION
     Dosage: UNK
     Route: 048
     Dates: end: 20170421
  3. ISOPTO TEARS                       /00445101/ [Concomitant]
     Indication: PRODUCT USED FOR UNKNOWN INDICATION
     Dosage: UNK
     Route: 047
     Dates: end: 20170420
  4. VITAMIN D                          /00107901/ [Concomitant]
     Active Substance: ERGOCALCIFEROL
     Indication: PRODUCT USED FOR UNKNOWN INDICATION
     Dosage: UNK
     Route: 048
     Dates: end: 20170421
  5. LIPITOR [Concomitant]
     Active Substance: ATORVASTATIN CALCIUM
     Indication: PRODUCT USED FOR UNKNOWN INDICATION
     Dosage: UNK
     Route: 048
     Dates: end: 20170419
  6. CENTRUM FORTE [Concomitant]
     Indication: PRODUCT USED FOR UNKNOWN INDICATION
     Dosage: UNK
     Route: 048
     Dates: end: 20170421
  7. ALTACE [Concomitant]
     Active Substance: RAMIPRIL
     Indication: PRODUCT USED FOR UNKNOWN INDICATION
     Dosage: UNK
     Route: 048
     Dates: end: 20170421
  8. NOVOLIN [Concomitant]
     Active Substance: INSULIN HUMAN
     Indication: PRODUCT USED FOR UNKNOWN INDICATION
     Dosage: UNK
     Dates: end: 20170421
  9. CLOZAPINE. [Suspect]
     Active Substance: CLOZAPINE
     Indication: PRODUCT USED FOR UNKNOWN INDICATION
     Dosage: 300 MG, UNK
     Route: 048
     Dates: end: 20170421
  10. LACTULOSE. [Concomitant]
     Active Substance: LACTULOSE
     Indication: PRODUCT USED FOR UNKNOWN INDICATION
     Dosage: UNK
     Route: 048
     Dates: end: 20170420

REACTIONS (37)
  - Blood glucose increased [Unknown]
  - Amylase decreased [Unknown]
  - Blood albumin decreased [Unknown]
  - Heart rate increased [Unknown]
  - Red blood cell count decreased [Not Recovered/Not Resolved]
  - White blood cell count increased [Unknown]
  - Haematemesis [Unknown]
  - Myocardial infarction [Unknown]
  - Hyperadrenalism [Unknown]
  - Gastrointestinal wall thickening [Unknown]
  - Haemoglobin decreased [Unknown]
  - Mean cell haemoglobin concentration decreased [Unknown]
  - Small intestinal obstruction [Recovering/Resolving]
  - Bundle branch block left [Unknown]
  - Lymphocyte count decreased [Unknown]
  - Internal hernia [Unknown]
  - Kidney fibrosis [Unknown]
  - Sinus tachycardia [Unknown]
  - Arteriosclerosis coronary artery [Unknown]
  - Aortic valve calcification [Unknown]
  - Hunger [Unknown]
  - Neutrophil count increased [Unknown]
  - Constipation [Unknown]
  - Agitation [Unknown]
  - Anion gap increased [Unknown]
  - Red cell distribution width increased [Unknown]
  - Myocardial ischaemia [Unknown]
  - Ileus [Unknown]
  - Pleural effusion [Unknown]
  - Renal cyst [Unknown]
  - Intervertebral disc degeneration [Unknown]
  - Compression fracture [Unknown]
  - Chest pain [Unknown]
  - Breast mass [Unknown]
  - Aortic arteriosclerosis [Unknown]
  - Acquired diaphragmatic eventration [Unknown]
  - Gastrointestinal haemorrhage [Unknown]

NARRATIVE: CASE EVENT DATE: 20170421
